FAERS Safety Report 12391033 (Version 2)
Quarter: 2016Q3

REPORT INFORMATION
  Report Type: Spontaneous
  Country: US (occurrence: US)
  Receive Date: 20160520
  Receipt Date: 20160727
  Transmission Date: 20161109
  Serious: Yes (Hospitalization)
  Sender: FDA-Public Use
  Company Number: US-PFIZER INC-2016266667

PATIENT
  Age: 69 Year
  Sex: Female
  Weight: 107 kg

DRUGS (6)
  1. CALCIUM CITRATE WITH VITAMIN D3 AND K [Concomitant]
     Dosage: 1 DF, 2X/DAY
     Route: 048
  2. DILTIAZEM. [Concomitant]
     Active Substance: DILTIAZEM
     Indication: HYPERTENSION
     Dosage: 120 MG, DAILY
     Route: 048
     Dates: start: 20160405
  3. AROMASIN [Suspect]
     Active Substance: EXEMESTANE
     Indication: BREAST CANCER
     Dosage: 25 MG, 1X/DAY
     Route: 048
     Dates: start: 2014
  4. ATORVASTATIN [Concomitant]
     Active Substance: ATORVASTATIN
     Indication: BLOOD CHOLESTEROL INCREASED
     Dosage: 20 MG, DAILY
     Route: 048
  5. GLUSAMINE [Concomitant]
     Indication: BONE DEVELOPMENT ABNORMAL
     Dosage: 1500 MG, 2X/DAY
     Route: 048
  6. CLONIDINE. [Concomitant]
     Active Substance: CLONIDINE
     Indication: HYPERTENSION
     Dosage: 0.1 MG, 2X/DAY
     Route: 048
     Dates: start: 20160405

REACTIONS (3)
  - Laryngitis [Recovered/Resolved]
  - Cough [Recovered/Resolved]
  - Bronchitis [Recovered/Resolved]

NARRATIVE: CASE EVENT DATE: 201603
